FAERS Safety Report 10757910 (Version 1)
Quarter: 2015Q1

REPORT INFORMATION
  Report Type: Spontaneous
  Country: US (occurrence: None)
  Receive Date: 20150202
  Receipt Date: 20150202
  Transmission Date: 20150721
  Serious: Yes (Disabling)
  Sender: FDA-Public Use
  Company Number: None

PATIENT
  Age: 48 Year
  Sex: Female
  Weight: 77.57 kg

DRUGS (1)
  1. GADOLINIUM [Suspect]
     Active Substance: GADOLINIUM
     Indication: ANGIOGRAM

REACTIONS (8)
  - Injection site joint movement impairment [None]
  - Muscular weakness [None]
  - Arthritis [None]
  - Fatigue [None]
  - Peripheral swelling [None]
  - Abasia [None]
  - Hypotonia [None]
  - Arthropathy [None]

NARRATIVE: CASE EVENT DATE: 20140806
